FAERS Safety Report 13401205 (Version 1)
Quarter: 2017Q2

REPORT INFORMATION
  Report Type: Spontaneous
  Country: IT (occurrence: IT)
  Receive Date: 20170404
  Receipt Date: 20170404
  Transmission Date: 20170830
  Serious: Yes (Hospitalization)
  Sender: FDA-Public Use
  Company Number: IT-SA-2017SA052756

PATIENT
  Age: 5 Year
  Sex: Female

DRUGS (4)
  1. LANTUS SOLOSTAR [Suspect]
     Active Substance: INSULIN GLARGINE
     Route: 065
     Dates: start: 20160920, end: 20161019
  2. HUMALOG [Suspect]
     Active Substance: INSULIN LISPRO
     Dosage: ROUTE SUB DERMAL
     Dates: start: 20160920, end: 20161020
  3. SOLOSTAR [Concomitant]
     Active Substance: DEVICE
     Dates: start: 20160920, end: 20161019
  4. SERETIDE [Concomitant]
     Active Substance: FLUTICASONE PROPIONATE\SALMETEROL XINAFOATE
     Indication: BRONCHOSPASM
     Dosage: PRESSURIZED SUSPENSION FOR INHALATION

REACTIONS (3)
  - Trismus [Recovering/Resolving]
  - Hypoglycaemia [Recovering/Resolving]
  - Staring [Recovering/Resolving]

NARRATIVE: CASE EVENT DATE: 20161028
